FAERS Safety Report 4289581-9 (Version None)
Quarter: 2004Q1

REPORT INFORMATION
  Report Type: 
  Country: None (occurrence: None)
  Receive Date: 20040206
  Receipt Date: 20040206
  Transmission Date: 20041129
  Serious: Yes (Hospitalization)
  Sender: FDA-Public Use
  Company Number: None

PATIENT
  Age: 28 Year
  Sex: Male
  Weight: 90.7194 kg

DRUGS (1)
  1. PAXIL [Suspect]
     Indication: SOCIAL PHOBIA
     Dosage: 20 MG DAY ORAL
     Route: 048
     Dates: start: 20030924, end: 20040122

REACTIONS (8)
  - AGITATION [None]
  - DIZZINESS [None]
  - HOMICIDAL IDEATION [None]
  - INSOMNIA [None]
  - MEDICATION ERROR [None]
  - PARAESTHESIA [None]
  - SUICIDAL IDEATION [None]
  - VERTIGO [None]
